FAERS Safety Report 8981283 (Version 4)
Quarter: 2013Q2

REPORT INFORMATION
  Report Type: Report from Study
  Country: JP (occurrence: JP)
  Receive Date: 20121221
  Receipt Date: 20130401
  Transmission Date: 20140414
  Serious: Yes (Hospitalization, Other)
  Sender: FDA-Public Use
  Company Number: JP-MERCK-2012SP010346

PATIENT
  Age: 62 Year
  Sex: Male
  Weight: 64 kg

DRUGS (18)
  1. PEGINTRON [Suspect]
     Indication: CHRONIC HEPATITIS C
     Dosage: 1.5 MICROGRAM PER KILOGRAM, QW
     Route: 058
     Dates: start: 20120210
  2. REBETOL [Suspect]
     Indication: CHRONIC HEPATITIS C
     Dosage: 800 MG, QD
     Route: 048
     Dates: start: 20120210, end: 20120309
  3. REBETOL [Suspect]
     Dosage: 400 MG, QD
     Route: 048
     Dates: start: 20120310, end: 20120316
  4. REBETOL [Suspect]
     Dosage: 400 MG, QD
     Route: 048
     Dates: start: 20120326, end: 20120326
  5. REBETOL [Suspect]
     Dosage: 400 MG, QD
     Route: 048
     Dates: start: 20120419, end: 20120504
  6. REBETOL [Suspect]
     Dosage: 200 MG, QD
     Route: 048
     Dates: start: 20120505, end: 20120614
  7. REBETOL [Suspect]
     Dosage: 300 MG, QD
     Route: 048
     Dates: start: 20120615, end: 20120621
  8. REBETOL [Suspect]
     Dosage: 400 MG, QD
     Route: 048
     Dates: start: 20120622, end: 20120705
  9. REBETOL [Suspect]
     Dosage: 600 MG, QD
     Route: 048
     Dates: start: 20120706
  10. TELAVIC [Suspect]
     Indication: CHRONIC HEPATITIS C
     Dosage: 2250 MG, QD
     Route: 048
     Dates: start: 20120210, end: 20120302
  11. TELAVIC [Suspect]
     Dosage: 1500 MG, QD
     Route: 048
     Dates: start: 20120303, end: 20120316
  12. MAGMITT [Concomitant]
     Indication: PROPHYLAXIS
     Dosage: 990 MG, QD, FORMULATION: POR
     Route: 048
     Dates: start: 20120216
  13. MYSLEE [Concomitant]
     Dosage: 10 G, QD, FORMULATION: POR
     Route: 048
     Dates: start: 20120303
  14. MYSLEE [Concomitant]
     Dosage: 10 UNK, UNK
  15. SEDEKOPAN [Concomitant]
     Indication: PROPHYLAXIS
     Dosage: 1 MG, QD, FORMULATION: POR
     Route: 048
  16. GASMOTIN [Concomitant]
     Indication: PROPHYLAXIS
     Dosage: 15 MG, QD, FORMULATION: POR
     Route: 048
  17. CONSTAN [Concomitant]
     Indication: PROPHYLAXIS
     Dosage: 1.2 MG, QD, FORMULATION: POR
     Route: 048
  18. ALLOPURINOL [Concomitant]
     Indication: PROPHYLAXIS
     Dosage: 200 MG, QD, FORMULATION: POR
     Route: 048

REACTIONS (4)
  - Blood creatinine increased [Recovering/Resolving]
  - Hyperuricaemia [Recovering/Resolving]
  - Anaemia [Recovering/Resolving]
  - Depressive symptom [Recovering/Resolving]
